FAERS Safety Report 7332144-9 (Version None)
Quarter: 2011Q1

REPORT INFORMATION
  Report Type: 
  Country: None (occurrence: None)
  Receive Date: 20110304
  Receipt Date: 20110301
  Transmission Date: 20110831
  Serious: Yes (Death)
  Sender: FDA-Public Use
  Company Number: PHFR2010GB05402

PATIENT
  Sex: Male

DRUGS (4)
  1. CLOZARIL [Suspect]
     Indication: SCHIZOPHRENIA
     Dosage: UNK MG, UNK
     Route: 048
     Dates: start: 20100713
  2. LORAZEPAM [Concomitant]
     Dosage: UNK DF, UNK
  3. METHADONE [Concomitant]
     Dosage: UNK DF, UNK
  4. BENZODIAZEPINES [Concomitant]
     Dosage: UNK DF, UNK

REACTIONS (4)
  - AGITATION [None]
  - SELF-INJURIOUS IDEATION [None]
  - AGGRESSION [None]
  - DEATH [None]
